FAERS Safety Report 8314798-3 (Version None)
Quarter: 2012Q2

REPORT INFORMATION
  Report Type: 
  Country: None (occurrence: None)
  Receive Date: 20120426
  Receipt Date: 20120423
  Transmission Date: 20120825
  Serious: Yes (Other)
  Sender: FDA-Public Use
  Company Number: PHEH2012US002114

PATIENT
  Sex: Male
  Weight: 95.873 kg

DRUGS (1)
  1. GILENYA [Suspect]
     Indication: MULTIPLE SCLEROSIS
     Dosage: 0.5 MG, DAILY
     Route: 048
     Dates: start: 20111110

REACTIONS (4)
  - LOSS OF CONSCIOUSNESS [None]
  - DIZZINESS [None]
  - BRADYCARDIA [None]
  - HEART RATE IRREGULAR [None]
